FAERS Safety Report 19674371 (Version 1)
Quarter: 2021Q3

REPORT INFORMATION
  Report Type: Spontaneous
  Country: US (occurrence: US)
  Receive Date: 20210809
  Receipt Date: 20210809
  Transmission Date: 20211014
  Serious: Yes (Hospitalization)
  Sender: FDA-Public Use
  Company Number: None

PATIENT
  Age: 78 Year
  Sex: Female

DRUGS (22)
  1. RISPERDAL [Concomitant]
     Active Substance: RISPERIDONE
  2. TUMS [Concomitant]
     Active Substance: CALCIUM CARBONATE
  3. AMLODIPINE [Concomitant]
     Active Substance: AMLODIPINE BESYLATE
  4. AUGMENTIN [Concomitant]
     Active Substance: AMOXICILLIN\CLAVULANATE POTASSIUM
  5. HYDROCHLOROT [Concomitant]
     Active Substance: HYDROCHLOROTHIAZIDE
  6. LOMOTIL [Concomitant]
     Active Substance: ATROPINE SULFATE\DIPHENOXYLATE HYDROCHLORIDE
  7. FLUOXETINE [Concomitant]
     Active Substance: FLUOXETINE HYDROCHLORIDE
  8. PHENERGAN [Concomitant]
     Active Substance: PROMETHAZINE HYDROCHLORIDE
  9. MORPHINE [Concomitant]
     Active Substance: MORPHINE
  10. CUBICIN [Concomitant]
     Active Substance: DAPTOMYCIN
  11. EPHERDRA [Concomitant]
  12. OXYCODONE [Concomitant]
     Active Substance: OXYCODONE
  13. VOTRIENT [Suspect]
     Active Substance: PAZOPANIB HYDROCHLORIDE
     Indication: BREAST CANCER FEMALE
     Route: 048
     Dates: start: 20180307
  14. CYMBALTA [Concomitant]
     Active Substance: DULOXETINE HYDROCHLORIDE
  15. GABAPENTIN. [Concomitant]
     Active Substance: GABAPENTIN
  16. ISOSORB [Concomitant]
  17. LOPERAMIDE [Concomitant]
     Active Substance: LOPERAMIDE
  18. LOSARTAN POT [Concomitant]
     Active Substance: LOSARTAN POTASSIUM
  19. TYLENOL, VITAMIN D3, VOTRIENT [Concomitant]
  20. HUMALOG [Concomitant]
     Active Substance: INSULIN LISPRO
  21. HYRDOCO/APAP [Concomitant]
  22. LANTUS [Concomitant]
     Active Substance: INSULIN GLARGINE

REACTIONS (1)
  - Myocardial infarction [None]

NARRATIVE: CASE EVENT DATE: 20210806
